FAERS Safety Report 18952705 (Version 2)
Quarter: 2021Q1

REPORT INFORMATION
  Report Type: Spontaneous
  Country: JP (occurrence: JP)
  Receive Date: 20210301
  Receipt Date: 20210308
  Transmission Date: 20210420
  Serious: Yes (Death)
  Sender: FDA-Public Use
  Company Number: NVSJ2021JP002235

PATIENT
  Age: 82 Year
  Sex: Male

DRUGS (1)
  1. NEORAL [Suspect]
     Active Substance: CYCLOSPORINE
     Indication: INTERSTITIAL LUNG DISEASE
     Dosage: 75 MG, BID
     Route: 048
     Dates: end: 20210205

REACTIONS (1)
  - Oral administration complication [Fatal]

NARRATIVE: CASE EVENT DATE: 20210205
